FAERS Safety Report 9379418 (Version 1)
Quarter: 2013Q2

REPORT INFORMATION
  Report Type: Spontaneous
  Country: CH (occurrence: None)
  Receive Date: 20130627
  Receipt Date: 20130627
  Transmission Date: 20140414
  Serious: Yes (Death, Other)
  Sender: FDA-Public Use
  Company Number: 2013P1009949

PATIENT
  Age: 79 Year
  Sex: Female

DRUGS (9)
  1. HYDROCORTISONE [Suspect]
     Indication: SURGERY
     Route: 042
  2. VANCOMYCIN [Suspect]
     Indication: MENINGISM
     Dosage: X2
     Route: 042
  3. CEFTRIAXONE [Suspect]
     Indication: MENINGISM
     Dosage: X2
     Route: 042
  4. DEXAMETHASONE [Suspect]
     Indication: MENINGISM
     Dosage: X3
     Route: 042
  5. DEXAMETHASONE [Suspect]
     Indication: VASCULITIS
     Dosage: X3
     Route: 042
  6. AUGMENTIN [Suspect]
     Indication: SURGERY
     Route: 042
  7. AUGMENTIN [Suspect]
     Route: 042
  8. MEROPENEM [Suspect]
     Indication: VASCULITIS
     Dosage: X3
     Route: 042
  9. CEFTAZIDIME [Suspect]
     Indication: MENINGISM
     Dosage: X3
     Route: 042

REACTIONS (4)
  - No therapeutic response [None]
  - Meningitis pneumococcal [None]
  - Vasculitis cerebral [None]
  - Post procedural complication [None]
